FAERS Safety Report 8739388 (Version 2)
Quarter: 2013Q3

REPORT INFORMATION
  Report Type: Report from Study
  Country: JP (occurrence: JP)
  Receive Date: 20120823
  Receipt Date: 20130916
  Transmission Date: 20140515
  Serious: Yes (Hospitalization, Other)
  Sender: FDA-Public Use
  Company Number: JP-ELI_LILLY_AND_COMPANY-JP201206000518

PATIENT
  Age: 65 Year
  Sex: Male

DRUGS (3)
  1. TERIPARATIDE [Suspect]
     Dosage: UNK
     Route: 058
     Dates: start: 20120424
  2. LOXONIN [Concomitant]
     Dosage: UNK
     Route: 048
     Dates: start: 2006
  3. CORTICOSTEROIDS [Concomitant]
     Dosage: UNK
     Route: 048
     Dates: start: 2006

REACTIONS (9)
  - Pneumonia [Unknown]
  - Fracture [Not Recovered/Not Resolved]
  - Injection site bruising [Unknown]
  - Candida infection [Recovered/Resolved]
  - Tremor [Unknown]
  - Back pain [Unknown]
  - Pyrexia [Recovered/Resolved]
  - Visual acuity reduced [Not Recovered/Not Resolved]
  - Pyrexia [Unknown]
